FAERS Safety Report 8159883-4 (Version None)
Quarter: 2012Q1

REPORT INFORMATION
  Report Type: 
  Country: None (occurrence: None)
  Receive Date: 20120223
  Receipt Date: 20120215
  Transmission Date: 20120608
  Serious: Yes (Hospitalization)
  Sender: FDA-Public Use
  Company Number: GB-JNJFOC-20120209910

PATIENT
  Age: 12 Year
  Sex: Male

DRUGS (3)
  1. ACETAMINOPHEN [Suspect]
     Route: 065
  2. IBUPROFEN [Suspect]
     Indication: PYREXIA
     Route: 065
  3. ACETAMINOPHEN [Suspect]
     Indication: PYREXIA
     Route: 065

REACTIONS (1)
  - STEVENS-JOHNSON SYNDROME [None]
